FAERS Safety Report 5155400-1 (Version None)
Quarter: 2006Q4

REPORT INFORMATION
  Report Type: 
  Country: None (occurrence: None)
  Receive Date: 20061121
  Receipt Date: 20060911
  Transmission Date: 20070319
  Serious: Yes (Hospitalization, Disabling)
  Sender: FDA-Public Use
  Company Number: DE-SANOFI-SYNTHELABO-A04200600926

PATIENT
  Sex: Male
  Weight: 97 kg

DRUGS (7)
  1. ALNA [Concomitant]
     Indication: BENIGN PROSTATIC HYPERPLASIA
     Route: 048
  2. OXIS [Concomitant]
     Indication: CHRONIC OBSTRUCTIVE PULMONARY DISEASE
     Dosage: UNK
     Route: 055
  3. PULMICORT [Concomitant]
     Indication: CHRONIC OBSTRUCTIVE PULMONARY DISEASE
     Dosage: UNK
     Route: 055
  4. ELOXATIN [Suspect]
     Indication: COLORECTAL CANCER METASTATIC
     Route: 042
     Dates: start: 20060801, end: 20060801
  5. LEUCOVORIN CALCIUM [Suspect]
     Indication: COLORECTAL CANCER METASTATIC
     Route: 041
     Dates: start: 20060801, end: 20060801
  6. FLUOROURACIL [Suspect]
     Indication: COLORECTAL CANCER METASTATIC
     Route: 040
     Dates: start: 20060801, end: 20060801
  7. FLUOROURACIL [Suspect]
     Route: 041
     Dates: start: 20060801, end: 20060801

REACTIONS (5)
  - BENIGN INTRACRANIAL HYPERTENSION [None]
  - CHROMATOPSIA [None]
  - DIZZINESS [None]
  - PAPILLOEDEMA [None]
  - VISUAL ACUITY REDUCED [None]
